FAERS Safety Report 7238755-3 (Version None)
Quarter: 2011Q1

REPORT INFORMATION
  Report Type: 
  Country: None (occurrence: None)
  Receive Date: 20110121
  Receipt Date: 20110119
  Transmission Date: 20110831
  Serious: Yes (Hospitalization)
  Sender: FDA-Public Use
  Company Number: US-ABBOTT-11P-163-0699045-00

PATIENT
  Sex: Male
  Weight: 59.02 kg

DRUGS (7)
  1. WELLBUTRIN [Concomitant]
     Indication: EX-TOBACCO USER
  2. ATIVAN [Concomitant]
     Indication: SLEEP TERROR
  3. MEDICINAL MARIJANA [Concomitant]
     Indication: PAIN
  4. IMURAN [Concomitant]
     Indication: CROHN'S DISEASE
  5. HUMIRA [Suspect]
     Indication: CROHN'S DISEASE
     Dates: start: 20101001
  6. DILANTIN [Concomitant]
     Indication: CONVULSION
  7. WELLBUTRIN [Concomitant]
     Indication: DEPRESSION

REACTIONS (4)
  - HAEMATEMESIS [None]
  - DRUG DOSE OMISSION [None]
  - ABDOMINAL PAIN UPPER [None]
  - VOMITING [None]
